FAERS Safety Report 4315068-0 (Version None)
Quarter: 2004Q1

REPORT INFORMATION
  Report Type: 
  Country: None (occurrence: None)
  Receive Date: 20040310
  Receipt Date: 20040105
  Transmission Date: 20041129
  Serious: Yes (Congenital Anomaly)
  Sender: FDA-Public Use
  Company Number: GB-ROCHE-355111

PATIENT
  Sex: Male
  Weight: 3.2 kg

DRUGS (1)
  1. ROACCUTANE [Suspect]
     Indication: DRUG USE FOR UNKNOWN INDICATION
     Dosage: MOTHER DISCONTINUED TREATMENT WITH ISOTRETINOIN AT 18/40 WEEKS GESTATION.

REACTIONS (2)
  - MATERNAL DRUGS AFFECTING FOETUS [None]
  - STRABISMUS CONGENITAL [None]
